FAERS Safety Report 7222163-5 (Version None)
Quarter: 2011Q1

REPORT INFORMATION
  Report Type: 
  Country: None (occurrence: None)
  Receive Date: 20110103
  Receipt Date: 20101216
  Transmission Date: 20110831
  Serious: Yes (Hospitalization, Other)
  Sender: FDA-Public Use
  Company Number: DSA_44571_2010

PATIENT
  Age: 66 Year
  Sex: Male

DRUGS (11)
  1. ENALAPRIL MALEATE AND HYDROCHLOROTHIAZIDE [Suspect]
     Indication: HYPERTENSION
     Dosage: (12.5/20 MG QD ORAL)
     Route: 048
     Dates: end: 20100609
  2. PLAVIX [Suspect]
     Indication: PRODUCT USED FOR UNKNOWN INDICATION
     Dosage: (75 MG QD ORAL), (75 MG QD ORAL)
     Route: 048
     Dates: start: 20100109, end: 20100128
  3. PLAVIX [Suspect]
     Indication: PRODUCT USED FOR UNKNOWN INDICATION
     Dosage: (75 MG QD ORAL), (75 MG QD ORAL)
     Route: 048
     Dates: start: 20100331
  4. NITRODERM [Concomitant]
  5. ASPIRIN [Suspect]
     Indication: CORONARY ARTERY DISEASE
     Dosage: (100 MG QD ORAL)
     Route: 048
  6. SORTIS (SORTIS-ATORVASTATIN CALCIUM) (NOT SPECIFIED) [Suspect]
     Indication: PRODUCT USED FOR UNKNOWN INDICATION
     Dosage: (40 MG DAILY)
     Dates: start: 20090107
  7. CLEXANE [Concomitant]
  8. FRAGMIN /01708302/ [Concomitant]
  9. NORVASC [Suspect]
     Indication: HYPERTENSION
     Dosage: (5 MG QD ORAL)
     Route: 048
  10. PLAVIX [Concomitant]
  11. ASPEGIC 1000 [Concomitant]

REACTIONS (4)
  - ACUTE CORONARY SYNDROME [None]
  - ANGIOEDEMA [None]
  - SIMILAR REACTION ON PREVIOUS EXPOSURE TO DRUG [None]
  - TYPE II HYPERSENSITIVITY [None]
